FAERS Safety Report 20621659 (Version 1)
Quarter: 2022Q1

REPORT INFORMATION
  Report Type: Spontaneous
  Country: US (occurrence: US)
  Receive Date: 20220322
  Receipt Date: 20220322
  Transmission Date: 20220423
  Serious: No
  Sender: FDA-Public Use
  Company Number: US-ALLERGAN-2131438US

PATIENT
  Sex: Female

DRUGS (2)
  1. LUMIGAN [Suspect]
     Active Substance: BIMATOPROST
     Indication: Glaucoma
     Dosage: 1 GTT, QPM
     Route: 047
  2. COMBIGAN [Concomitant]
     Active Substance: BRIMONIDINE TARTRATE\TIMOLOL MALEATE
     Indication: Glaucoma
     Dosage: 1 GTT, BID
     Route: 047

REACTIONS (7)
  - Expired product administered [Unknown]
  - Ocular hyperaemia [Unknown]
  - Eye irritation [Unknown]
  - Lacrimation increased [Unknown]
  - Erythema of eyelid [Unknown]
  - Eye pruritus [Unknown]
  - Ocular discomfort [Unknown]
